FAERS Safety Report 8066403-1 (Version None)
Quarter: 2012Q1

REPORT INFORMATION
  Report Type: 
  Country: None (occurrence: None)
  Receive Date: 20120124
  Receipt Date: 20120124
  Transmission Date: 20120608
  Serious: Yes (Other)
  Sender: FDA-Public Use
  Company Number: None

PATIENT
  Age: 65 Year
  Sex: Female
  Weight: 74.842 kg

DRUGS (1)
  1. RECLAST [Suspect]
     Indication: OSTEOPENIA
     Dosage: 5 MG
     Route: 042
     Dates: start: 20120118, end: 20120118

REACTIONS (7)
  - NAUSEA [None]
  - MYALGIA [None]
  - CHILLS [None]
  - VOMITING [None]
  - DIARRHOEA [None]
  - PYREXIA [None]
  - BONE PAIN [None]
